FAERS Safety Report 9734938 (Version 1)
Quarter: 2013Q4

REPORT INFORMATION
  Report Type: Spontaneous
  Country: US (occurrence: US)
  Receive Date: 20131206
  Receipt Date: 20131206
  Transmission Date: 20140711
  Serious: Yes (Other)
  Sender: FDA-Public Use
  Company Number: US-PFIZER INC-2013348634

PATIENT
  Age: 51 Year
  Sex: Female
  Weight: 101.59 kg

DRUGS (3)
  1. LYRICA [Suspect]
     Indication: FIBROMYALGIA
     Dosage: UNK, 1XX/DAY
     Route: 048
     Dates: start: 2010, end: 2010
  2. TRAMADOL [Concomitant]
     Indication: PAIN
     Dosage: UNK
  3. GABAPENTIN [Concomitant]
     Dosage: UNK

REACTIONS (2)
  - Cardiac failure congestive [Unknown]
  - Local swelling [Unknown]
